FAERS Safety Report 19952021 (Version 1)
Quarter: 2021Q4

REPORT INFORMATION
  Report Type: Spontaneous
  Country: US (occurrence: US)
  Receive Date: 20211013
  Receipt Date: 20211013
  Transmission Date: 20220303
  Serious: No
  Sender: FDA-Public Use
  Company Number: US-BAYER-2021A214179

PATIENT
  Age: 40 Year
  Sex: Male

DRUGS (1)
  1. CLARINEX [Suspect]
     Active Substance: DESLORATADINE
     Indication: Seasonal allergy
     Dosage: 5 MILLIGRAM (MG), DAILY (QD)
     Dates: start: 20210426, end: 20210516

REACTIONS (2)
  - Body temperature increased [Recovered/Resolved]
  - Blood bilirubin increased [Recovering/Resolving]

NARRATIVE: CASE EVENT DATE: 20210610
